FAERS Safety Report 18653908 (Version 1)
Quarter: 2020Q4

REPORT INFORMATION
  Report Type: Spontaneous
  Country: US (occurrence: US)
  Receive Date: 20201223
  Receipt Date: 20201223
  Transmission Date: 20210114
  Serious: No
  Sender: FDA-Public Use
  Company Number: US-ASTRAZENECA-2020SF58430

PATIENT
  Sex: Male
  Weight: 106.6 kg

DRUGS (3)
  1. PRENDISONE [Concomitant]
     Dosage: DAILY
  2. FASENRA [Suspect]
     Active Substance: BENRALIZUMAB
     Indication: EOSINOPHIL COUNT ABNORMAL
     Route: 058
  3. ALBUTEROL. [Concomitant]
     Active Substance: ALBUTEROL

REACTIONS (3)
  - Drug ineffective [Unknown]
  - Asthma [Unknown]
  - Off label use [Unknown]
